FAERS Safety Report 14358434 (Version 1)
Quarter: 2018Q1

REPORT INFORMATION
  Report Type: Spontaneous
  Country: US (occurrence: US)
  Receive Date: 20180105
  Receipt Date: 20180105
  Transmission Date: 20180509
  Serious: No
  Sender: FDA-Public Use
  Company Number: US-SA-2017SA223260

PATIENT
  Age: 55 Year
  Sex: Male
  Weight: 86.18 kg

DRUGS (5)
  1. DOXEPIN [Concomitant]
     Active Substance: DOXEPIN
     Indication: ECZEMA
     Route: 065
     Dates: start: 20151202
  2. DESOXIMETASONE. [Concomitant]
     Active Substance: DESOXIMETASONE
     Indication: ECZEMA
     Dosage: .25%
     Route: 065
     Dates: start: 20151116
  3. MOMETASONE [Concomitant]
     Active Substance: MOMETASONE
     Indication: ECZEMA
     Dosage: 1%
     Route: 065
     Dates: start: 20151202
  4. DUPIXENT [Suspect]
     Active Substance: DUPILUMAB
     Indication: ECZEMA
     Route: 058
     Dates: start: 201710, end: 20171120
  5. DUPIXENT [Suspect]
     Active Substance: DUPILUMAB
     Indication: ECZEMA
     Route: 058
     Dates: start: 20171012, end: 20171012

REACTIONS (8)
  - Lymphadenopathy [Recovering/Resolving]
  - Oropharyngeal pain [Recovered/Resolved]
  - Serum sickness [Recovering/Resolving]
  - Arthralgia [Recovering/Resolving]
  - Lethargy [Recovered/Resolved]
  - Pyrexia [Recovered/Resolved]
  - Pyrexia [Recovering/Resolving]
  - Influenza like illness [Recovered/Resolved]

NARRATIVE: CASE EVENT DATE: 201710
